FAERS Safety Report 19013409 (Version 5)
Quarter: 2021Q3

REPORT INFORMATION
  Report Type: Report from Study
  Country: AR (occurrence: AR)
  Receive Date: 20210315
  Receipt Date: 20210727
  Transmission Date: 20211014
  Serious: Yes (Other)
  Sender: FDA-Public Use
  Company Number: AR-INCYTE CORPORATION-2020IN009774

PATIENT

DRUGS (2)
  1. JAKAVI [Suspect]
     Active Substance: RUXOLITINIB
     Indication: MYELOFIBROSIS
     Dosage: 5 MG, Q12H
     Route: 048
     Dates: start: 20191216
  2. JAKAVI [Suspect]
     Active Substance: RUXOLITINIB
     Dosage: 5 MG, BID
     Route: 048
     Dates: start: 20191223, end: 202011

REACTIONS (8)
  - Second primary malignancy [Unknown]
  - Abdominal pain [Unknown]
  - Platelet count decreased [Unknown]
  - Metastases to bone [Unknown]
  - Memory impairment [Unknown]
  - Thrombocytopenia [Unknown]
  - Breast cancer [Unknown]
  - Deafness [Unknown]

NARRATIVE: CASE EVENT DATE: 20200301
